FAERS Safety Report 4288656-8 (Version None)
Quarter: 2004Q1

REPORT INFORMATION
  Report Type: 
  Country: None (occurrence: None)
  Receive Date: 20040205
  Receipt Date: 20040129
  Transmission Date: 20041129
  Serious: Yes (Life-Threatening, Hospitalization)
  Sender: FDA-Public Use
  Company Number: 200327595BWH

PATIENT
  Age: 53 Year
  Sex: Male
  Weight: 67.586 kg

DRUGS (16)
  1. LEVITRA [Suspect]
     Indication: ERECTILE DYSFUNCTION
     Dosage: SEE IMAGE
     Dates: start: 20031009
  2. LEVITRA [Suspect]
     Indication: ERECTILE DYSFUNCTION
     Dosage: SEE IMAGE
     Dates: start: 20031012
  3. SPORANOX [Concomitant]
  4. TENORMIN [Concomitant]
  5. CARDURA [Concomitant]
  6. MAXZIDE [Concomitant]
  7. VIREAD [Concomitant]
  8. EPIVIR [Concomitant]
  9. VIRAMUNE [Concomitant]
  10. PROTONIX [Concomitant]
  11. SYNTHROID [Concomitant]
  12. ACYCLOVIR [Concomitant]
  13. SOMA [Concomitant]
  14. DEPO-TESTOSTERONE [Concomitant]
  15. NANDROLONE DECANOATE [Concomitant]
  16. VIAGRA [Concomitant]

REACTIONS (2)
  - ATRIAL FIBRILLATION [None]
  - OVERDOSE [None]
